FAERS Safety Report 6592429-0 (Version None)
Quarter: 2010Q1

REPORT INFORMATION
  Report Type: 
  Country: None (occurrence: None)
  Receive Date: 20100221
  Receipt Date: 20091008
  Transmission Date: 20100710
  Serious: No
  Sender: FDA-Public Use
  Company Number: US-ALLERGAN-0913961US

PATIENT
  Sex: Female

DRUGS (2)
  1. BOTOX COSMETIC [Suspect]
     Indication: SKIN WRINKLING
     Dosage: 38 UNITS, SINGLE
     Route: 030
     Dates: start: 20090827, end: 20090827
  2. BOTOX COSMETIC [Suspect]
     Dosage: 17 UNITS, SINGLE
     Route: 030
     Dates: start: 20090901, end: 20090901

REACTIONS (1)
  - THERAPEUTIC RESPONSE DECREASED [None]
